FAERS Safety Report 7715209-9 (Version None)
Quarter: 2011Q3

REPORT INFORMATION
  Report Type: 
  Country: None (occurrence: None)
  Receive Date: 20110829
  Receipt Date: 20110819
  Transmission Date: 20111222
  Serious: Yes (Other)
  Sender: FDA-Public Use
  Company Number: PHHY2010FR49261

PATIENT
  Age: 83 Year
  Sex: Female
  Weight: 84 kg

DRUGS (1)
  1. FEMARA [Suspect]
     Indication: BREAST CANCER
     Dosage: 1 DF DAILY FOR 2 YEARS

REACTIONS (4)
  - RETINAL VASCULAR THROMBOSIS [None]
  - VISION BLURRED [None]
  - VISUAL ACUITY REDUCED [None]
  - BLINDNESS [None]
